FAERS Safety Report 22122687 (Version 1)
Quarter: 2023Q1

REPORT INFORMATION
  Report Type: Spontaneous
  Country: US (occurrence: US)
  Receive Date: 20230321
  Receipt Date: 20230321
  Transmission Date: 20230418
  Serious: Yes (Other)
  Sender: FDA-Public Use
  Company Number: US-VALIDUS PHARMACEUTICALS LLC-US-VDP-2023-015997

PATIENT

DRUGS (3)
  1. BUMETANIDE [Suspect]
     Active Substance: BUMETANIDE
     Indication: Product used for unknown indication
     Dosage: UNK
     Route: 065
  2. BUMETANIDE [Suspect]
     Active Substance: BUMETANIDE
     Dosage: UNK UNK, QD
     Route: 065
  3. BUMETANIDE [Suspect]
     Active Substance: BUMETANIDE
     Dosage: UNK UNK, QOD
     Route: 065

REACTIONS (1)
  - Renal impairment [Unknown]
